FAERS Safety Report 9900100 (Version 1)
Quarter: 2014Q1

REPORT INFORMATION
  Report Type: Spontaneous
  Country: HU (occurrence: HU)
  Receive Date: 20140214
  Receipt Date: 20140214
  Transmission Date: 20141002
  Serious: Yes (Other)
  Sender: FDA-Public Use
  Company Number: HU-BAXTER-2014BAX006890

PATIENT
  Sex: Male

DRUGS (1)
  1. DIANEAL PD4 GLUCOSE 1,36% PERITONE?LIS DIALIZ?L? OLDAT [Suspect]
     Indication: PERITONEAL DIALYSIS
     Route: 033

REACTIONS (1)
  - Hernia [Not Recovered/Not Resolved]
